FAERS Safety Report 14080275 (Version 1)
Quarter: 2017Q4

REPORT INFORMATION
  Report Type: Spontaneous
  Country: US (occurrence: US)
  Receive Date: 20171012
  Receipt Date: 20171012
  Transmission Date: 20180321
  Serious: Yes (Other)
  Sender: FDA-Public Use
  Company Number: US-IPSEN BIOPHARMACEUTICALS, INC.-2017-11774

PATIENT
  Age: 37 Year
  Sex: Female

DRUGS (1)
  1. DYSPORT [Suspect]
     Active Substance: ABOBOTULINUMTOXINA
     Indication: SKIN WRINKLING
     Dosage: 20 UNITS
     Route: 065

REACTIONS (10)
  - Malaise [Unknown]
  - Asthenia [Recovered/Resolved]
  - Headache [Recovered/Resolved]
  - Pain [Recovered/Resolved]
  - Neck pain [Recovered/Resolved]
  - Urticaria [Unknown]
  - Poisoning [Unknown]
  - Musculoskeletal pain [Recovered/Resolved]
  - Fatigue [Recovered/Resolved]
  - Fear [Unknown]
